FAERS Safety Report 25060739 (Version 2)
Quarter: 2025Q1

REPORT INFORMATION
  Report Type: Spontaneous
  Country: US (occurrence: US)
  Receive Date: 20250310
  Receipt Date: 20250314
  Transmission Date: 20250409
  Serious: No
  Sender: BLUEPRINT MEDICINES
  Company Number: US-Blueprint Medicines Corporation-2025-AER-00442

PATIENT
  Age: 77 Year
  Sex: Female

DRUGS (4)
  1. AYVAKIT [Suspect]
     Active Substance: AVAPRITINIB
     Indication: Gastrointestinal stromal tumour
     Route: 065
     Dates: start: 20250125
  2. AYVAKIT [Suspect]
     Active Substance: AVAPRITINIB
     Route: 065
  3. AYVAKIT [Suspect]
     Active Substance: AVAPRITINIB
     Route: 065
  4. AYVAKIT [Suspect]
     Active Substance: AVAPRITINIB
     Route: 065
     Dates: start: 20250125

REACTIONS (10)
  - Dyspnoea [Unknown]
  - Fatigue [Unknown]
  - Dysgeusia [Unknown]
  - Impaired quality of life [Unknown]
  - Poor quality sleep [Unknown]
  - Pain [Unknown]
  - Loss of personal independence in daily activities [Unknown]
  - Swelling of eyelid [Unknown]
  - Dyspnoea exertional [Unknown]
  - Speech disorder [Unknown]
